FAERS Safety Report 24042016 (Version 9)
Quarter: 2025Q2

REPORT INFORMATION
  Report Type: Spontaneous
  Country: US (occurrence: US)
  Receive Date: 20240702
  Receipt Date: 20250530
  Transmission Date: 20250717
  Serious: Yes (Other)
  Sender: SANOFI AVENTIS
  Company Number: US-SA-SAC20240612001215

PATIENT
  Age: 77 Year
  Sex: Female

DRUGS (1)
  1. DUPIXENT [Suspect]
     Active Substance: DUPILUMAB
     Indication: Neurodermatitis
     Dosage: 300 MG, QOW
     Route: 058

REACTIONS (28)
  - Neuropathy peripheral [Unknown]
  - Lower respiratory tract infection [Unknown]
  - Injection site discomfort [Unknown]
  - Injection site warmth [Unknown]
  - Dysphonia [Unknown]
  - Tremor [Recovered/Resolved]
  - Bacterial infection [Unknown]
  - Fatigue [Unknown]
  - Malaise [Unknown]
  - Hyperhidrosis [Recovered/Resolved]
  - Nasal congestion [Unknown]
  - Persistent postural-perceptual dizziness [Unknown]
  - Brain fog [Unknown]
  - Blood glucose abnormal [Unknown]
  - Balance disorder [Unknown]
  - Hypoaesthesia [Unknown]
  - Stress [Unknown]
  - Rash pruritic [Not Recovered/Not Resolved]
  - Pruritus [Unknown]
  - Conjunctivitis [Unknown]
  - Ocular hyperaemia [Unknown]
  - Condition aggravated [Unknown]
  - Injection site bruising [Unknown]
  - Dry eye [Unknown]
  - Injection site pain [Unknown]
  - Accidental exposure to product [Unknown]
  - Exposure via skin contact [Unknown]
  - Therapeutic product effect incomplete [Unknown]

NARRATIVE: CASE EVENT DATE: 20240101
